FAERS Safety Report 7771934-5 (Version None)
Quarter: 2011Q3

REPORT INFORMATION
  Report Type: 
  Country: None (occurrence: None)
  Receive Date: 20110922
  Receipt Date: 20100910
  Transmission Date: 20111222
  Serious: Yes (Hospitalization)
  Sender: FDA-Public Use
  Company Number: US-ASTRAZENECA-2010SE42638

PATIENT
  Age: 27 Year
  Sex: Male

DRUGS (9)
  1. SEROQUEL XR [Suspect]
     Indication: ASPERGER'S DISORDER
     Route: 048
     Dates: start: 20100601, end: 20100601
  2. SEROQUEL XR [Suspect]
     Route: 048
     Dates: start: 20100601
  3. SEROQUEL XR [Suspect]
     Route: 048
     Dates: start: 20100601
  4. LORAZEPAM [Concomitant]
  5. SEROQUEL XR [Suspect]
     Route: 048
     Dates: start: 20100601
  6. SEROQUEL XR [Suspect]
     Indication: SCHIZOPHRENIA
     Route: 048
     Dates: start: 20100601, end: 20100601
  7. CLONAZEPAM [Concomitant]
  8. SEROQUEL XR [Suspect]
     Indication: DEPRESSION
     Route: 048
     Dates: start: 20100601, end: 20100601
  9. CITALOPRAM HYDROBROMIDE [Concomitant]

REACTIONS (5)
  - SUICIDAL IDEATION [None]
  - DRUG INEFFECTIVE [None]
  - DEPRESSION [None]
  - HYPERSOMNIA [None]
  - MENTAL DISORDER [None]
